FAERS Safety Report 11121067 (Version 1)
Quarter: 2015Q2

REPORT INFORMATION
  Report Type: Spontaneous
  Country: US (occurrence: None)
  Receive Date: 20150515
  Receipt Date: 20150515
  Transmission Date: 20150821
  Serious: Yes (Other)
  Sender: FDA-Public Use
  Company Number: US-H14001-15-00707

PATIENT
  Age: 14 Year
  Sex: Female
  Weight: 77 kg

DRUGS (3)
  1. RISPERIDONE. [Suspect]
     Active Substance: RISPERIDONE
     Indication: PRODUCT USED FOR UNKNOWN INDICATION
  2. ARIPIPRAZOLE. [Concomitant]
     Active Substance: ARIPIPRAZOLE
  3. AMOXICILLIN. [Concomitant]
     Active Substance: AMOXICILLIN

REACTIONS (3)
  - Pituitary tumour benign [None]
  - Galactorrhoea [None]
  - Hyperprolactinaemia [None]
